FAERS Safety Report 5189972-8 (Version None)
Quarter: 2006Q4

REPORT INFORMATION
  Report Type: 
  Country: None (occurrence: None)
  Receive Date: 20061215
  Receipt Date: 20061204
  Transmission Date: 20070319
  Serious: Yes (Hospitalization)
  Sender: FDA-Public Use
  Company Number: 2006149394

PATIENT
  Age: 27 Year
  Sex: Male
  Weight: 77 kg

DRUGS (3)
  1. ZITHROMAX [Suspect]
     Indication: PHARYNGITIS
     Dosage: ORAL
     Route: 048
     Dates: start: 20060922, end: 20060924
  2. ADVIL [Suspect]
     Indication: PHARYNGITIS
     Dosage: 2 DF (FREQUENCY:  TID), ORAL
     Route: 048
     Dates: start: 20060922, end: 20060927
  3. BI-PROFEND (KETOPROFEN) [Concomitant]

REACTIONS (2)
  - NEPHRITIS INTERSTITIAL [None]
  - RENAL FAILURE [None]
